FAERS Safety Report 6983749-6 (Version None)
Quarter: 2010Q3

REPORT INFORMATION
  Report Type: 
  Country: None (occurrence: None)
  Receive Date: 20100914
  Receipt Date: 20020314
  Transmission Date: 20110219
  Serious: Yes (Hospitalization)
  Sender: FDA-Public Use
  Company Number: US-WYE-H07131808

PATIENT
  Age: 55 Year
  Sex: Female
  Weight: 71.73 kg

DRUGS (1)
  1. ADVIL LIQUI-GELS [Suspect]
     Indication: SCIATICA
     Dosage: 20 TO 30 TABLETS A DAY FOR SOME TIME
     Route: 048

REACTIONS (3)
  - ABDOMINAL PAIN UPPER [None]
  - CHEST PAIN [None]
  - OVERDOSE [None]
